APPROVED DRUG PRODUCT: RIFAMPIN
Active Ingredient: RIFAMPIN
Strength: 300MG
Dosage Form/Route: CAPSULE;ORAL
Application: A065390 | Product #002 | TE Code: AB
Applicant: CHARTWELL MOLECULAR HOLDINGS LLC
Approved: Mar 28, 2008 | RLD: No | RS: No | Type: RX